FAERS Safety Report 8808559 (Version 1)
Quarter: 2012Q4

REPORT INFORMATION
  Report Type: 
  Country: US (occurrence: None)
  Receive Date: 20120920
  Receipt Date: 20120920
  Transmission Date: 20130627
  Serious: Yes (Hospitalization)
  Sender: FDA-Public Use
  Company Number: None

PATIENT
  Sex: Female
  Weight: 105.4 kg

DRUGS (2)
  1. CARBOPLATIN [Suspect]
     Dates: end: 20120906
  2. PACLITAXEL [Suspect]
     Dates: end: 20120912

REACTIONS (7)
  - Malaise [None]
  - Decreased appetite [None]
  - Neutrophil count decreased [None]
  - Hyponatraemia [None]
  - Dehydration [None]
  - Nausea [None]
  - Vomiting [None]
